FAERS Safety Report 7604399-4 (Version None)
Quarter: 2011Q2

REPORT INFORMATION
  Report Type: 
  Country: None (occurrence: None)
  Receive Date: 20110630
  Receipt Date: 20110616
  Transmission Date: 20111010
  Serious: Yes (Hospitalization)
  Sender: FDA-Public Use
  Company Number: DSJ-2011-12331

PATIENT
  Age: 7 Decade
  Sex: Female

DRUGS (7)
  1. BENICAR [Suspect]
     Indication: HYPERTENSION
     Dosage: 20 MG (20 MG, 1 IN 1 D), PER ORAL
     Route: 048
     Dates: start: 20080101, end: 20110610
  2. DOMPERIDONE (DOMPERIDONE) (DOMPERIDONE) [Concomitant]
  3. AMLODIPINE [Concomitant]
  4. BROMAZEPAM (BROMAZEPAM) (BROMAZEPAM) [Concomitant]
  5. ESOMEPRAZOLE (ESOMEPRAZOLE) (ESOMEPRAZOLE) [Concomitant]
  6. LEVOTHYROXINE SODIUM (LEVOTHYROXINE SODIUM) (LEVOTHYROXINE SODIUM) [Concomitant]
  7. ATENOLOL [Concomitant]

REACTIONS (2)
  - HERNIA HIATUS REPAIR [None]
  - DRUG INEFFECTIVE [None]
